FAERS Safety Report 13042824 (Version 1)
Quarter: 2016Q4

REPORT INFORMATION
  Report Type: Spontaneous
  Country: US (occurrence: US)
  Receive Date: 20161219
  Receipt Date: 20161219
  Transmission Date: 20170207
  Serious: No
  Sender: FDA-Public Use
  Company Number: US-ELI_LILLY_AND_COMPANY-US201611008464

PATIENT
  Age: 15 Year

DRUGS (1)
  1. SOMATROPIN [Suspect]
     Active Substance: SOMATROPIN
     Indication: GROWTH HORMONE DEFICIENCY
     Dosage: 3.8 MG, QD
     Route: 065

REACTIONS (2)
  - Incorrect product storage [Unknown]
  - Underdose [Unknown]

NARRATIVE: CASE EVENT DATE: 20161122
